FAERS Safety Report 17927819 (Version 1)
Quarter: 2020Q2

REPORT INFORMATION
  Report Type: Report from Study
  Country: US (occurrence: US)
  Receive Date: 20200623
  Receipt Date: 20200623
  Transmission Date: 20200714
  Serious: Yes (Death)
  Sender: FDA-Public Use
  Company Number: US-ROCHE-2617493

PATIENT
  Age: 63 Year
  Sex: Female

DRUGS (16)
  1. COPAXONE [Concomitant]
     Active Substance: GLATIRAMER ACETATE
  2. OCREVUS [Suspect]
     Active Substance: OCRELIZUMAB
     Indication: RELAPSING-REMITTING MULTIPLE SCLEROSIS
     Dosage: RECEIVED INITIAL 300MG INFUSION ONLY
     Route: 065
     Dates: start: 20200304
  3. PLAVIX [Concomitant]
     Active Substance: CLOPIDOGREL BISULFATE
  4. ATORVASTATIN [Concomitant]
     Active Substance: ATORVASTATIN
  5. REBIF [Concomitant]
     Active Substance: INTERFERON BETA-1A
  6. ATROVENT [Concomitant]
     Active Substance: IPRATROPIUM BROMIDE
  7. LISINOPRIL. [Concomitant]
     Active Substance: LISINOPRIL
  8. AMLODIPINE [Concomitant]
     Active Substance: AMLODIPINE BESYLATE
  9. ASPIRIN [ACETYLSALICYLIC ACID] [Concomitant]
     Active Substance: ASPIRIN
  10. AVONEX [Concomitant]
     Active Substance: INTERFERON BETA-1A
  11. AUBAGIO [Concomitant]
     Active Substance: TERIFLUNOMIDE
  12. HYDROCHLOROTHIAZIDE. [Concomitant]
     Active Substance: HYDROCHLOROTHIAZIDE
  13. AMPYRA [Concomitant]
     Active Substance: DALFAMPRIDINE
  14. LIPITOR [Concomitant]
     Active Substance: ATORVASTATIN CALCIUM
  15. ALBUTEROL [SALBUTAMOL] [Concomitant]
     Active Substance: ALBUTEROL
  16. CLOPIDOGREL [Concomitant]
     Active Substance: CLOPIDOGREL BISULFATE

REACTIONS (3)
  - Cardiac arrest [Fatal]
  - Hypoxia [Fatal]
  - COVID-19 [Fatal]

NARRATIVE: CASE EVENT DATE: 20200423
